FAERS Safety Report 17014882 (Version 1)
Quarter: 2019Q4

REPORT INFORMATION
  Report Type: Spontaneous
  Country: GB (occurrence: GB)
  Receive Date: 20191111
  Receipt Date: 20191111
  Transmission Date: 20200122
  Serious: Yes (Other)
  Sender: FDA-Public Use
  Company Number: GB-AUROBINDO-AUR-APL-2019-070835

PATIENT
  Age: 55 Year
  Sex: Female
  Weight: 56 kg

DRUGS (1)
  1. CLARITHROMYCIN. [Suspect]
     Active Substance: CLARITHROMYCIN
     Indication: EYE INFECTION
     Dosage: 500 MILLIGRAM
     Route: 048
     Dates: start: 20190801, end: 20190807

REACTIONS (3)
  - Psychotic symptom [Recovered/Resolved]
  - Euphoric mood [Unknown]
  - Confusional state [Unknown]
